FAERS Safety Report 16485992 (Version 1)
Quarter: 2019Q2

REPORT INFORMATION
  Report Type: Spontaneous
  Country: US (occurrence: US)
  Receive Date: 20190627
  Receipt Date: 20190627
  Transmission Date: 20190711
  Serious: Yes (Other)
  Sender: FDA-Public Use
  Company Number: US-AMNEAL PHARMACEUTICALS-2019AMN00630

PATIENT
  Age: 76 Year

DRUGS (3)
  1. TRIAMCINOLONE ACETONIDE. [Suspect]
     Active Substance: TRIAMCINOLONE ACETONIDE
     Indication: BACK PAIN
     Dosage: UNK
     Route: 008
     Dates: start: 2018
  2. OMNIPAQUE [Suspect]
     Active Substance: IOHEXOL
     Indication: BACK PAIN
     Dosage: UNK
     Route: 008
     Dates: start: 2018
  3. NORMAL SALINE MPF [Suspect]
     Active Substance: SODIUM CHLORIDE
     Indication: BACK PAIN
     Dosage: UNK
     Route: 008
     Dates: start: 2018

REACTIONS (6)
  - Loss of control of legs [Unknown]
  - Internal haemorrhage [Not Recovered/Not Resolved]
  - Spinal cord infection [Unknown]
  - Dysstasia [Not Recovered/Not Resolved]
  - Fall [Unknown]
  - Anaemia [Recovering/Resolving]

NARRATIVE: CASE EVENT DATE: 20190115
